FAERS Safety Report 12940624 (Version 2)
Quarter: 2016Q4

REPORT INFORMATION
  Report Type: Spontaneous
  Country: HU (occurrence: HU)
  Receive Date: 20161114
  Receipt Date: 20161121
  Transmission Date: 20170207
  Serious: Yes (Other)
  Sender: FDA-Public Use
  Company Number: HU-ABBVIE-16P-076-1780692-00

PATIENT
  Age: 72 Year
  Sex: Female

DRUGS (5)
  1. FENTANYL. [Concomitant]
     Active Substance: FENTANYL
     Indication: ANAESTHESIA
  2. OXYGEN. [Concomitant]
     Active Substance: OXYGEN
     Indication: ANAESTHESIA
  3. SUXAMETHONIUM [Interacting]
     Active Substance: SUCCINYLCHOLINE
     Indication: ANAESTHESIA
     Route: 065
  4. SEVOFRANE [Suspect]
     Active Substance: SEVOFLURANE
     Indication: ANAESTHESIA
     Route: 055
  5. PROPOFOL. [Concomitant]
     Active Substance: PROPOFOL
     Indication: ANAESTHESIA

REACTIONS (4)
  - Apnoea [Recovered/Resolved]
  - Delayed recovery from anaesthesia [Recovered/Resolved]
  - Drug interaction [Recovered/Resolved]
  - Neuromuscular block prolonged [Recovered/Resolved]
